FAERS Safety Report 4440237-9 (Version None)
Quarter: 2004Q3

REPORT INFORMATION
  Report Type: 
  Country: None (occurrence: None)
  Receive Date: 20040831
  Receipt Date: 20040817
  Transmission Date: 20050211
  Serious: No
  Sender: FDA-Public Use
  Company Number: 2004GB02000

PATIENT
  Age: 83 Year
  Sex: Female
  Weight: 55.4 kg

DRUGS (4)
  1. GEFITINIB [Suspect]
     Indication: NON-SMALL CELL LUNG CANCER
     Dosage: 250 MG QD PO
     Route: 048
     Dates: start: 20040609, end: 20040811
  2. AQUEOUS CREAM [Concomitant]
  3. ASPIRIN [Concomitant]
  4. BENDROFLUAZIDE [Concomitant]

REACTIONS (2)
  - ABDOMINAL PAIN [None]
  - ANOREXIA [None]
